FAERS Safety Report 4357875-4 (Version None)
Quarter: 2004Q2

REPORT INFORMATION
  Report Type: 
  Country: None (occurrence: None)
  Receive Date: 20040514
  Receipt Date: 20040209
  Transmission Date: 20050107
  Serious: Yes (Other)
  Sender: FDA-Public Use
  Company Number: PHBS2004NL01964

PATIENT
  Age: 46 Year
  Sex: Female

DRUGS (8)
  1. CLOZAPINE [Suspect]
     Indication: HUNTINGTON'S CHOREA
     Dosage: 12.5 MG/D
     Route: 065
  2. CLOZAPINE [Suspect]
     Dosage: 175 MG/D
     Route: 065
  3. CLOZAPINE [Suspect]
     Dosage: 100 MG/D
     Route: 065
  4. DIAZEPAM [Suspect]
     Dosage: 2 MG, TID
     Route: 065
  5. HALOPERIDOL [Concomitant]
     Dosage: 10 MG, TID
     Route: 065
  6. IBUPROFEN [Concomitant]
     Dosage: 200 MG, TID
     Route: 065
  7. PANTOZOL [Concomitant]
     Dosage: 40 MG/D
     Route: 065
  8. OXAZEPAM [Suspect]
     Dosage: 75 MG, QD
     Route: 065

REACTIONS (10)
  - BLOOD PRESSURE INCREASED [None]
  - COLD SWEAT [None]
  - COMA [None]
  - DRUG TOXICITY [None]
  - HEART RATE DECREASED [None]
  - HYPERSOMNIA [None]
  - MIOSIS [None]
  - MUSCULAR WEAKNESS [None]
  - PALLOR [None]
  - SALIVARY HYPERSECRETION [None]
